FAERS Safety Report 19376022 (Version 1)
Quarter: 2021Q2

REPORT INFORMATION
  Report Type: Report from Study
  Country: DE (occurrence: DE)
  Receive Date: 20210605
  Receipt Date: 20210605
  Transmission Date: 20210717
  Serious: Yes (Life-Threatening, Hospitalization, Other)
  Sender: FDA-Public Use
  Company Number: DE-CELLTRION INC.-2021DE007519

PATIENT

DRUGS (1)
  1. TRUXIMA [Suspect]
     Active Substance: RITUXIMAB-ABBS
     Indication: PRODUCT USED FOR UNKNOWN INDICATION

REACTIONS (11)
  - Mucosal inflammation [Recovered/Resolved]
  - Congestive cardiomyopathy [Unknown]
  - Neutrophil count decreased [Recovered/Resolved]
  - Pulmonary embolism [Unknown]
  - Eye pain [Recovered/Resolved]
  - Rhinorrhoea [Unknown]
  - Fatigue [Unknown]
  - Pancytopenia [Recovered/Resolved]
  - Dizziness [Recovered/Resolved]
  - Acute kidney injury [Recovered/Resolved]
  - Dehydration [Recovered/Resolved]

NARRATIVE: CASE EVENT DATE: 202003
